FAERS Safety Report 7504041-7 (Version None)
Quarter: 2011Q2

REPORT INFORMATION
  Report Type: 
  Country: None (occurrence: None)
  Receive Date: 20110525
  Receipt Date: 20110513
  Transmission Date: 20111010
  Serious: Yes (Other)
  Sender: FDA-Public Use
  Company Number: PHHY2011US11628

PATIENT
  Sex: Female

DRUGS (3)
  1. AFINITOR [Suspect]
     Indication: TUBEROUS SCLEROSIS
     Dosage: 2.5 MG, DAILY
     Route: 048
     Dates: start: 20110204
  2. AFINITOR [Suspect]
     Indication: ASTROCYTOMA
  3. RISPERDAL [Concomitant]

REACTIONS (14)
  - COUGH [None]
  - NASAL CONGESTION [None]
  - NERVOUSNESS [None]
  - SPEECH DISORDER [None]
  - AGITATION [None]
  - DECREASED APPETITE [None]
  - ANXIETY [None]
  - RHINORRHOEA [None]
  - DIARRHOEA [None]
  - SELF INJURIOUS BEHAVIOUR [None]
  - ASTHMA [None]
  - WHEEZING [None]
  - PRURITUS GENERALISED [None]
  - POOR QUALITY SLEEP [None]
